FAERS Safety Report 18366624 (Version 2)
Quarter: 2020Q4

REPORT INFORMATION
  Report Type: Spontaneous
  Country: CA (occurrence: CA)
  Receive Date: 20201009
  Receipt Date: 20201013
  Transmission Date: 20210114
  Serious: Yes (Hospitalization, Other)
  Sender: FDA-Public Use
  Company Number: CA-PFIZER INC-2020384826

PATIENT

DRUGS (3)
  1. SUTENT [Suspect]
     Active Substance: SUNITINIB MALATE
     Indication: METASTATIC RENAL CELL CARCINOMA
     Dosage: 50 MG, CYCLIC (4/2 WEEK SCHEDULE )
     Dates: start: 201909
  2. SUTENT [Suspect]
     Active Substance: SUNITINIB MALATE
     Dosage: 50 MG, CYCLIC (4/2 WEEK SCHEDULE)
     Dates: start: 201910
  3. SUTENT [Suspect]
     Active Substance: SUNITINIB MALATE
     Dosage: 62.5 MG, CYCLIC (14D/7D)
     Dates: start: 202004

REACTIONS (8)
  - Small intestinal obstruction [Unknown]
  - Off label use [Unknown]
  - Neoplasm progression [Unknown]
  - Product use issue [Unknown]
  - Adrenal insufficiency [Unknown]
  - Hepatitis [Unknown]
  - Internal hernia [Unknown]
  - Conjunctivitis [Unknown]

NARRATIVE: CASE EVENT DATE: 202005
